FAERS Safety Report 7843700-3 (Version None)
Quarter: 2011Q4

REPORT INFORMATION
  Report Type: 
  Country: None (occurrence: None)
  Receive Date: 20111025
  Receipt Date: 20111010
  Transmission Date: 20120403
  Serious: Yes (Other)
  Sender: FDA-Public Use
  Company Number: PL-CELGENEUS-129-20785-11101187

PATIENT

DRUGS (1)
  1. THALIDOMIDE [Suspect]
     Indication: MULTIPLE MYELOMA
     Route: 048

REACTIONS (13)
  - OVARIAN CANCER [None]
  - BLADDER ADENOCARCINOMA STAGE UNSPECIFIED [None]
  - LEUKAEMIA PLASMACYTIC [None]
  - SKIN CANCER [None]
  - MYELODYSPLASTIC SYNDROME [None]
  - PLASMACYTOMA [None]
  - MALIGNANT MELANOMA [None]
  - COLON CANCER [None]
  - NON-SMALL CELL LUNG CANCER [None]
  - B-CELL LYMPHOMA [None]
  - PROSTATE CANCER [None]
  - ACUTE MYELOID LEUKAEMIA [None]
  - NEOPLASM MALIGNANT [None]
